FAERS Safety Report 5487614-5 (Version None)
Quarter: 2007Q4

REPORT INFORMATION
  Report Type: 
  Country: None (occurrence: None)
  Receive Date: 20071016
  Receipt Date: 20071009
  Transmission Date: 20080405
  Serious: No
  Sender: FDA-Public Use
  Company Number: US-ELI_LILLY_AND_COMPANY-US200709004220

PATIENT
  Sex: Female
  Weight: 101.59 kg

DRUGS (4)
  1. BYETTA [Suspect]
     Indication: TYPE 2 DIABETES MELLITUS
     Dosage: 10 UG, 2/D
     Route: 058
     Dates: start: 20070801
  2. HUMULIN /00646001/ [Concomitant]
     Indication: TYPE 2 DIABETES MELLITUS
     Route: 058
  3. THYROID TAB [Concomitant]
     Indication: THYROID THERAPY
     Route: 048
  4. PLAVIX [Concomitant]
     Indication: DRUG USE FOR UNKNOWN INDICATION

REACTIONS (3)
  - CONTRAST MEDIA ALLERGY [None]
  - PRURITUS GENERALISED [None]
  - WEIGHT INCREASED [None]
